FAERS Safety Report 22310770 (Version 1)
Quarter: 2023Q2

REPORT INFORMATION
  Report Type: Spontaneous
  Country: DE (occurrence: DE)
  Receive Date: 20230511
  Receipt Date: 20230511
  Transmission Date: 20230722
  Serious: Yes (Other)
  Sender: FDA-Public Use
  Company Number: DE-ELI_LILLY_AND_COMPANY-DE202305002611

PATIENT
  Age: 81 Year
  Sex: Male

DRUGS (5)
  1. OLUMIANT [Suspect]
     Active Substance: BARICITINIB
     Indication: Rheumatoid arthritis
     Dosage: 4 MG, UNKNOWN
     Route: 048
     Dates: start: 2020
  2. OLUMIANT [Suspect]
     Active Substance: BARICITINIB
     Indication: Pericarditis rheumatic
     Dosage: 2 MG, UNKNOWN
     Route: 048
  3. ANAKINRA [Concomitant]
     Active Substance: ANAKINRA
  4. COLCHICINE [Concomitant]
     Active Substance: COLCHICINE
  5. PREDNISOLONE [Concomitant]
     Active Substance: PREDNISOLONE

REACTIONS (2)
  - Pancreatic carcinoma [Unknown]
  - Hepatic enzyme increased [Unknown]

NARRATIVE: CASE EVENT DATE: 20230401
